FAERS Safety Report 8171210-5 (Version None)
Quarter: 2012Q1

REPORT INFORMATION
  Report Type: 
  Country: None (occurrence: None)
  Receive Date: 20120228
  Receipt Date: 20120117
  Transmission Date: 20120608
  Serious: No
  Sender: FDA-Public Use
  Company Number: US-BRISTOL-MYERS SQUIBB COMPANY-16353047

PATIENT
  Age: 79 Year
  Sex: Male
  Weight: 80 kg

DRUGS (2)
  1. PLAVIX [Suspect]
     Dates: start: 20080101
  2. ONGLYZA [Suspect]
     Dosage: DOSE REDUCED TO 2.5MG
     Dates: start: 20100101

REACTIONS (3)
  - JOINT SWELLING [None]
  - GASTROINTESTINAL DISORDER [None]
  - PRURITUS [None]
